FAERS Safety Report 18034359 (Version 3)
Quarter: 2020Q4

REPORT INFORMATION
  Report Type: Spontaneous
  Country: ES (occurrence: ES)
  Receive Date: 20200716
  Receipt Date: 20201005
  Transmission Date: 20210113
  Serious: Yes (Hospitalization, Other)
  Sender: FDA-Public Use
  Company Number: ES-SA-2020SA181585

PATIENT

DRUGS (1)
  1. DUPIXENT [Suspect]
     Active Substance: DUPILUMAB
     Dosage: 300 MG, QOW
     Dates: start: 202005, end: 202005

REACTIONS (6)
  - Chronic obstructive pulmonary disease [Unknown]
  - Hypoxia [Not Recovered/Not Resolved]
  - Hypersensitivity pneumonitis [Not Recovered/Not Resolved]
  - Acute respiratory distress syndrome [Unknown]
  - Pneumonia [Not Recovered/Not Resolved]
  - Colitis ischaemic [Unknown]

NARRATIVE: CASE EVENT DATE: 2020
